FAERS Safety Report 23845251 (Version 2)
Quarter: 2024Q2

REPORT INFORMATION
  Report Type: Report from Study
  Country: CA (occurrence: CA)
  Receive Date: 20240511
  Receipt Date: 20240520
  Transmission Date: 20240716
  Serious: No
  Sender: FDA-Public Use
  Company Number: CA-AMGEN-CANSL2024091066

PATIENT
  Age: 47 Year
  Sex: Female

DRUGS (2)
  1. AVSOLA [Suspect]
     Active Substance: INFLIXIMAB-AXXQ
     Indication: Sarcoidosis
     Dosage: UNK, Q8WK
     Route: 065
  2. AVSOLA [Suspect]
     Active Substance: INFLIXIMAB-AXXQ
     Dosage: UNK, Q4WK
     Route: 065

REACTIONS (1)
  - Off label use [Unknown]
